FAERS Safety Report 22215339 (Version 1)
Quarter: 2023Q2

REPORT INFORMATION
  Report Type: Spontaneous
  Country: US (occurrence: US)
  Receive Date: 20230415
  Receipt Date: 20230415
  Transmission Date: 20230721
  Serious: No
  Sender: FDA-Public Use
  Company Number: US-JNJFOC-20190637837

PATIENT

DRUGS (6)
  1. PEPCID [Suspect]
     Active Substance: FAMOTIDINE
     Indication: Chest discomfort
     Route: 065
  2. PEPCID [Suspect]
     Active Substance: FAMOTIDINE
     Indication: Flushing
  3. PEPCID [Suspect]
     Active Substance: FAMOTIDINE
     Indication: Chills
  4. PEPCID [Suspect]
     Active Substance: FAMOTIDINE
     Indication: Sneezing
  5. PEPCID [Suspect]
     Active Substance: FAMOTIDINE
     Indication: Cough
  6. DARATUMUMAB [Concomitant]
     Active Substance: DARATUMUMAB
     Indication: Product used for unknown indication
     Route: 058

REACTIONS (1)
  - Product use in unapproved indication [Unknown]
